FAERS Safety Report 9523583 (Version 2)
Quarter: 2013Q3

REPORT INFORMATION
  Report Type: Spontaneous
  Country: BR (occurrence: BR)
  Receive Date: 20130913
  Receipt Date: 20130919
  Transmission Date: 20140515
  Serious: Yes (Death, Life-Threatening, Hospitalization)
  Sender: FDA-Public Use
  Company Number: BR-B.I. PHARMACEUTICALS,INC./RIDGEFIELD-2013-BR-01031BR

PATIENT
  Age: 79 Year
  Sex: Male

DRUGS (4)
  1. SPIRIVA RESPIMAT [Suspect]
     Indication: CHRONIC OBSTRUCTIVE PULMONARY DISEASE
     Route: 055
     Dates: start: 2011, end: 20120524
  2. INSULIN [Concomitant]
     Indication: DIABETES MELLITUS
     Dates: start: 2010, end: 20120524
  3. MEDICATION FOR HIGH BLOOD PRESSURE [Concomitant]
     Indication: HYPERTENSION
  4. MEDICATION NOT FURTHER SPECIFIED [Concomitant]
     Indication: BLOOD CREATININE INCREASED

REACTIONS (2)
  - Pulmonary embolism [Fatal]
  - Sepsis [Fatal]
